FAERS Safety Report 21989432 (Version 1)
Quarter: 2023Q1

REPORT INFORMATION
  Report Type: Spontaneous
  Country: US (occurrence: None)
  Receive Date: 20230210
  Receipt Date: 20230210
  Transmission Date: 20230417
  Serious: Yes (Life-Threatening, Hospitalization)
  Sender: FDA-Public Use
  Company Number: None

PATIENT
  Age: 84 Year
  Sex: Female
  Weight: 80.29 kg

DRUGS (8)
  1. DILTIAZEM HYDROCHLORIDE [Suspect]
     Active Substance: DILTIAZEM HYDROCHLORIDE
     Indication: Atrial fibrillation
     Dosage: FREQUENCY : DAILY;?
     Route: 048
     Dates: start: 20221213, end: 20221217
  2. CANDESARTAN (ATACAND) [Concomitant]
  3. TORSEMIDE [Concomitant]
     Active Substance: TORSEMIDE
  4. ULORIC (FLEUROSTAT) [Concomitant]
  5. ELIQUIS [Concomitant]
     Active Substance: APIXABAN
  6. VITAMIN D [Concomitant]
     Active Substance: VITAMIN D NOS
  7. 81 ASPIRIN [Concomitant]
  8. TRIPLE MAGNESIUM COMPLEX [Concomitant]

REACTIONS (3)
  - Dyspnoea [None]
  - Hypersomnia [None]
  - Myocardial infarction [None]
